FAERS Safety Report 9824106 (Version 1)
Quarter: 2014Q1

REPORT INFORMATION
  Report Type: Spontaneous
  Country: US (occurrence: US)
  Receive Date: 20140116
  Receipt Date: 20140116
  Transmission Date: 20141002
  Serious: Yes (Hospitalization)
  Sender: FDA-Public Use
  Company Number: US-BIOMARINAP-US-2014-102232

PATIENT
  Age: 2 Year
  Sex: Male
  Weight: 13.3 kg

DRUGS (1)
  1. NAGLAZYME [Suspect]
     Indication: MUCOPOLYSACCHARIDOSIS VI
     Dosage: `15 MG, QW
     Route: 041
     Dates: start: 20130507

REACTIONS (3)
  - Tonsillar hypertrophy [Recovered/Resolved]
  - Adenoidal hypertrophy [Recovered/Resolved]
  - Sleep apnoea syndrome [Recovered/Resolved]
